FAERS Safety Report 23222508 (Version 1)
Quarter: 2023Q4

REPORT INFORMATION
  Report Type: Report from Study
  Country: US (occurrence: US)
  Receive Date: 20231123
  Receipt Date: 20231123
  Transmission Date: 20240110
  Serious: Yes (Hospitalization, Other)
  Sender: FDA-Public Use
  Company Number: US-UCBSA-2023055264

PATIENT
  Sex: Female

DRUGS (1)
  1. NAYZILAM [Suspect]
     Active Substance: MIDAZOLAM
     Indication: Seizure
     Dosage: UNK

REACTIONS (11)
  - Seizure [Unknown]
  - Inflammatory bowel disease [Unknown]
  - Autism spectrum disorder [Unknown]
  - Hypersensitivity [Unknown]
  - Asthma [Unknown]
  - Back disorder [Unknown]
  - Chronic fatigue syndrome [Unknown]
  - Arthralgia [Unknown]
  - Myalgia [Unknown]
  - Skin disorder [Unknown]
  - Drug ineffective [Unknown]
